FAERS Safety Report 8548636-0 (Version None)
Quarter: 2012Q3

REPORT INFORMATION
  Report Type: 
  Country: None (occurrence: None)
  Receive Date: 20120730
  Receipt Date: 20120718
  Transmission Date: 20120928
  Serious: Yes (Other)
  Sender: FDA-Public Use
  Company Number: US-BAYER-2012-071746

PATIENT
  Age: 51 Year
  Sex: Female

DRUGS (3)
  1. DROSPIRENONE AND ETHINYL ESTRADIOL [Suspect]
     Dosage: UNK
     Dates: start: 20100601, end: 20111101
  2. YAZ [Suspect]
     Dosage: UNK
     Dates: start: 20071201, end: 20080801
  3. YAZ [Suspect]
     Dosage: UNK
     Dates: start: 20090401, end: 20100501

REACTIONS (2)
  - PULMONARY EMBOLISM [None]
  - INJURY [None]
